FAERS Safety Report 5697988-8 (Version None)
Quarter: 2008Q2

REPORT INFORMATION
  Report Type: 
  Country: None (occurrence: None)
  Receive Date: 20080408
  Receipt Date: 20080328
  Transmission Date: 20081010
  Serious: Yes (Hospitalization)
  Sender: FDA-Public Use
  Company Number: JP-PFIZER INC-2008021331

PATIENT
  Sex: Female

DRUGS (10)
  1. DIFLUCAN [Suspect]
     Indication: OESOPHAGEAL CANDIDIASIS
     Dosage: DAILY DOSE:200MG
     Route: 048
  2. PRODIF [Suspect]
     Indication: OESOPHAGEAL CANDIDIASIS
     Dosage: DAILY DOSE:252.3MG
     Route: 042
  3. PREDONINE [Concomitant]
     Route: 048
  4. LOXONIN [Concomitant]
     Route: 048
  5. LEXOTAN [Concomitant]
     Route: 048
  6. POLLAKISU [Concomitant]
     Route: 048
  7. TAKEPRON [Concomitant]
     Route: 048
  8. ALENDRONATE SODIUM [Concomitant]
     Route: 048
  9. CALBLOCK [Concomitant]
     Route: 048
  10. MUCOSOLVAN [Concomitant]
     Route: 048

REACTIONS (1)
  - INAPPROPRIATE ANTIDIURETIC HORMONE SECRETION [None]
